FAERS Safety Report 5876333-9 (Version None)
Quarter: 2008Q3

REPORT INFORMATION
  Report Type: 
  Country: None (occurrence: None)
  Receive Date: 20080908
  Receipt Date: 20080908
  Transmission Date: 20090109
  Serious: Yes (Life-Threatening, Hospitalization, Other)
  Sender: FDA-Public Use
  Company Number: None

PATIENT
  Age: 9 Year
  Sex: Female
  Weight: 16.3295 kg

DRUGS (2)
  1. PROPYLTHIOURACIL [Suspect]
     Indication: BASEDOW'S DISEASE
     Dosage: 150 MG, 100 MG, 150 PO
     Route: 048
     Dates: start: 20060512, end: 20061020
  2. PROPYLTHIOURACIL [Suspect]
     Indication: HYPERTHYROIDISM
     Dosage: 150 MG, 100 MG, 150 PO
     Route: 048
     Dates: start: 20060512, end: 20061020

REACTIONS (8)
  - ACUTE HEPATIC FAILURE [None]
  - ANTIMITOCHONDRIAL ANTIBODY POSITIVE [None]
  - ANTINUCLEAR ANTIBODY POSITIVE [None]
  - APHTHOUS STOMATITIS [None]
  - HEPATIC ENCEPHALOPATHY [None]
  - HEPATITIS [None]
  - LIVER TRANSPLANT [None]
  - SMOOTH MUSCLE ANTIBODY POSITIVE [None]
